FAERS Safety Report 7508585-3 (Version None)
Quarter: 2011Q2

REPORT INFORMATION
  Report Type: 
  Country: None (occurrence: None)
  Receive Date: 20110527
  Receipt Date: 20100616
  Transmission Date: 20111010
  Serious: No
  Sender: FDA-Public Use
  Company Number: A0867962A

PATIENT
  Age: 66 Year
  Sex: Female
  Weight: 36.3 kg

DRUGS (17)
  1. POTASSIUM CHLORIDE [Concomitant]
     Dosage: 10MEQ THREE TIMES PER DAY
     Route: 048
  2. NASACORT [Concomitant]
     Route: 045
  3. FERROUS SULFATE TAB [Concomitant]
     Dosage: 325MG PER DAY
     Route: 048
  4. FLOLAN [Suspect]
     Route: 042
     Dates: start: 20040723
  5. IMODIUM [Concomitant]
     Dosage: 2MG AS REQUIRED
     Route: 048
  6. LEVOXYL [Concomitant]
     Dosage: 25MCG PER DAY
     Route: 048
  7. CLARITIN [Concomitant]
     Dosage: 10MG PER DAY
     Route: 048
  8. RESTORIL [Concomitant]
     Dosage: 30MG AT NIGHT
     Route: 048
  9. COUMADIN [Concomitant]
     Dosage: 1UG PER DAY
     Route: 048
  10. TRACLEER [Concomitant]
     Dosage: 135MG TWICE PER DAY
     Route: 048
  11. REVATIO [Concomitant]
     Dosage: 10MG THREE TIMES PER DAY
     Route: 048
  12. ALENDRONATE SODIUM [Concomitant]
     Route: 048
  13. CHLORHEXIDINE GLUCONATE [Concomitant]
  14. MULTI-VITAMIN [Concomitant]
     Route: 048
  15. EDECRIN [Concomitant]
     Dosage: 25MG PER DAY
     Route: 048
  16. CALTRATE + D [Concomitant]
     Route: 048
  17. OMEPRAZOLE [Concomitant]
     Dosage: 20MG AT NIGHT
     Route: 048

REACTIONS (1)
  - DIZZINESS [None]
